FAERS Safety Report 16164585 (Version 3)
Quarter: 2019Q2

REPORT INFORMATION
  Report Type: Spontaneous
  Country: NL (occurrence: NL)
  Receive Date: 20190405
  Receipt Date: 20190429
  Transmission Date: 20190711
  Serious: Yes (Hospitalization, Other)
  Sender: FDA-Public Use
  Company Number: NL-ALLERGAN-1914782US

PATIENT
  Sex: Male

DRUGS (1)
  1. BOTULINUM TOXIN TYPE A UNK [Suspect]
     Active Substance: BOTULINUM TOXIN TYPE A
     Indication: PARALYSIS
     Dosage: UNK, SINGLE
     Route: 030

REACTIONS (3)
  - Septic shock [Recovering/Resolving]
  - Drug specific antibody [Recovering/Resolving]
  - Off label use [Unknown]
